FAERS Safety Report 6003124-0 (Version None)
Quarter: 2008Q4

REPORT INFORMATION
  Report Type: 
  Country: None (occurrence: None)
  Receive Date: 20081216
  Receipt Date: 20081208
  Transmission Date: 20090506
  Serious: Yes (Death)
  Sender: FDA-Public Use
  Company Number: ZA-TEVA-182179ISR

PATIENT
  Sex: Female
  Weight: 69 kg

DRUGS (7)
  1. RASAGILINE MESILATE [Suspect]
     Indication: PARKINSON'S DISEASE
     Route: 048
     Dates: start: 20080901, end: 20081024
  2. SINEMET [Concomitant]
     Indication: PARKINSON'S DISEASE
     Dosage: 100/25
     Route: 048
  3. BROMOCRIPTINE [Concomitant]
     Route: 048
  4. AMANTADINE HCL [Concomitant]
     Route: 048
  5. METFORMIN HCL [Concomitant]
     Route: 048
  6. AMLODIPINE [Concomitant]
     Route: 048
  7. ENALAPRIL MALEATE [Concomitant]
     Route: 048

REACTIONS (1)
  - MYOCARDIAL INFARCTION [None]
